FAERS Safety Report 20029853 (Version 1)
Quarter: 2021Q4

REPORT INFORMATION
  Report Type: Report from Study
  Country: KE (occurrence: KE)
  Receive Date: 20211103
  Receipt Date: 20211103
  Transmission Date: 20220303
  Serious: Yes (Death, Life-Threatening, Hospitalization, Other)
  Sender: FDA-Public Use
  Company Number: KE-NOVARTISPH-NVSC2021KE251254

PATIENT
  Age: 70 Year
  Sex: Male

DRUGS (8)
  1. SACUBITRIL\VALSARTAN [Suspect]
     Active Substance: SACUBITRIL\VALSARTAN
     Indication: Ejection fraction decreased
     Dosage: 50 MG, BID
     Route: 048
     Dates: start: 202104, end: 202110
  2. SACUBITRIL\VALSARTAN [Suspect]
     Active Substance: SACUBITRIL\VALSARTAN
     Indication: Cardiac failure chronic
  3. SACUBITRIL\VALSARTAN [Suspect]
     Active Substance: SACUBITRIL\VALSARTAN
     Indication: Diabetic cardiomyopathy
  4. DIGOXIN [Concomitant]
     Active Substance: DIGOXIN
     Indication: Product used for unknown indication
     Dosage: 0.125 G, QD
     Route: 065
  5. ALDACTONE [Concomitant]
     Active Substance: SPIRONOLACTONE
     Indication: Product used for unknown indication
     Dosage: 12.5 G, QD
     Route: 065
  6. CARVIDON [Concomitant]
     Indication: Product used for unknown indication
     Dosage: 1.562 G, QD
     Route: 065
  7. LASIX [Concomitant]
     Active Substance: FUROSEMIDE
     Indication: Product used for unknown indication
     Dosage: 80 MG, QD
     Route: 065
  8. IVABRADINE [Concomitant]
     Active Substance: IVABRADINE
     Indication: Product used for unknown indication
     Dosage: 5 MG, BID
     Route: 048

REACTIONS (13)
  - Cardiac failure [Fatal]
  - Ejection fraction decreased [Fatal]
  - Dyspnoea [Fatal]
  - Congestive cardiomyopathy [Fatal]
  - Pneumonia [Fatal]
  - Pleural effusion [Fatal]
  - Cough [Fatal]
  - Chest pain [Fatal]
  - Oedema peripheral [Fatal]
  - Fatigue [Fatal]
  - Pain [Fatal]
  - Peripheral swelling [Fatal]
  - Joint swelling [Fatal]

NARRATIVE: CASE EVENT DATE: 20211001
